FAERS Safety Report 18323315 (Version 2)
Quarter: 2020Q4

REPORT INFORMATION
  Report Type: Spontaneous
  Country: US (occurrence: US)
  Receive Date: 20200928
  Receipt Date: 20201009
  Transmission Date: 20210113
  Serious: Yes (Other)
  Sender: FDA-Public Use
  Company Number: US-BAYER-2020-209778

PATIENT
  Sex: Male
  Weight: 90.8 kg

DRUGS (4)
  1. ALUMINIUM HYDROXIDE;MAGNESIUM HYDROXIDE;SIMETICONE [Concomitant]
     Active Substance: ALUMINUM HYDROXIDE\DIMETHICONE\MAGNESIUM HYDROXIDE
     Indication: PRODUCT USED FOR UNKNOWN INDICATION
     Dosage: UNK
     Route: 065
  2. XARELTO [Suspect]
     Active Substance: RIVAROXABAN
     Indication: PULMONARY THROMBOSIS
     Dosage: 20 MG, QD
     Route: 048
     Dates: start: 2018
  3. BAYER LOW DOSE [Suspect]
     Active Substance: ASPIRIN
     Indication: COAGULOPATHY
     Dosage: 81 MG, QD
     Route: 065
  4. PLAVIX [Suspect]
     Active Substance: CLOPIDOGREL BISULFATE
     Indication: PRODUCT USED FOR UNKNOWN INDICATION
     Dosage: UNK
     Route: 065

REACTIONS (6)
  - Weight decreased [Unknown]
  - Pharyngeal swelling [Not Recovered/Not Resolved]
  - Constipation [Unknown]
  - Gastric ulcer haemorrhage [Unknown]
  - Stent placement [Unknown]
  - Product dose omission issue [Unknown]

NARRATIVE: CASE EVENT DATE: 2018
